FAERS Safety Report 14037389 (Version 2)
Quarter: 2017Q4

REPORT INFORMATION
  Report Type: Report from Study
  Country: JP (occurrence: JP)
  Receive Date: 20171004
  Receipt Date: 20171207
  Transmission Date: 20180321
  Serious: Yes (Hospitalization, Other)
  Sender: FDA-Public Use
  Company Number: JP-ACTELION-A-CH2017-160180

PATIENT
  Age: 11 Month
  Sex: Female

DRUGS (6)
  1. OPSUMIT [Suspect]
     Active Substance: MACITENTAN
     Indication: PULMONARY ARTERIAL HYPERTENSION
     Dosage: 1 MG, OD
     Route: 048
     Dates: start: 20170422, end: 20170614
  2. OPSUMIT [Suspect]
     Active Substance: MACITENTAN
     Dosage: 0.5 MG, OD
     Route: 048
     Dates: start: 20170213, end: 20170421
  3. CARBOCISTEINE [Concomitant]
     Active Substance: CARBOCYSTEINE
  4. FUROSEMIDE. [Concomitant]
     Active Substance: FUROSEMIDE
  5. SPIRONOLACTONE. [Concomitant]
     Active Substance: SPIRONOLACTONE
  6. VOLIBRIS [Concomitant]
     Active Substance: AMBRISENTAN

REACTIONS (2)
  - Gastroenteritis [Recovering/Resolving]
  - Vomiting [Recovered/Resolved]

NARRATIVE: CASE EVENT DATE: 20170603
